FAERS Safety Report 8381192-9 (Version None)
Quarter: 2012Q2

REPORT INFORMATION
  Report Type: 
  Country: None (occurrence: None)
  Receive Date: 20120522
  Receipt Date: 20120509
  Transmission Date: 20120825
  Serious: Yes (Other)
  Sender: FDA-Public Use
  Company Number: USW201205-000076

PATIENT
  Age: 57 Year
  Sex: Male

DRUGS (5)
  1. CARBIDOPA [Concomitant]
  2. APOKYN [Suspect]
     Indication: PARKINSON'S DISEASE
     Dosage: 3.5 MG/HOUR FOR 12 HOURS/DAY, SUBCUTANEOUS
     Route: 058
  3. ROPINIROLE XL [Concomitant]
  4. STALEVO 100 [Concomitant]
  5. AMANTADINE HCL [Concomitant]

REACTIONS (2)
  - INFUSION SITE NECROSIS [None]
  - INFUSION SITE ULCER [None]
